FAERS Safety Report 5946258-9 (Version None)
Quarter: 2008Q4

REPORT INFORMATION
  Report Type: 
  Country: None (occurrence: None)
  Receive Date: 20081110
  Receipt Date: 20081008
  Transmission Date: 20090506
  Serious: No
  Sender: FDA-Public Use
  Company Number: US-BAYER-200835601NA

PATIENT
  Sex: Female

DRUGS (1)
  1. MIRENA [Suspect]
     Indication: DRUG USE FOR UNKNOWN INDICATION
     Route: 015
     Dates: start: 20080924, end: 20081005

REACTIONS (5)
  - ALOPECIA [None]
  - DIZZINESS [None]
  - NAUSEA [None]
  - PELVIC PAIN [None]
  - VAGINAL HAEMORRHAGE [None]
